FAERS Safety Report 7865604-2 (Version None)
Quarter: 2011Q4

REPORT INFORMATION
  Report Type: 
  Country: None (occurrence: None)
  Receive Date: 20111028
  Receipt Date: 20110121
  Transmission Date: 20120403
  Serious: No
  Sender: FDA-Public Use
  Company Number: US-GLAXOSMITHKLINE-A0908048A

PATIENT
  Age: 24 Year
  Sex: Female

DRUGS (2)
  1. ANTIBIOTICS [Concomitant]
  2. ADVAIR DISKUS 100/50 [Suspect]
     Indication: BRONCHITIS
     Dosage: 1PUFF PER DAY
     Route: 055
     Dates: start: 20110107, end: 20110108

REACTIONS (3)
  - TREMOR [None]
  - VOMITING [None]
  - HEADACHE [None]
